FAERS Safety Report 10615666 (Version 1)
Quarter: 2014Q4

REPORT INFORMATION
  Report Type: Report from Study
  Country: US (occurrence: US)
  Receive Date: 20141201
  Receipt Date: 20141201
  Transmission Date: 20150529
  Serious: Yes (Hospitalization, Other)
  Sender: FDA-Public Use
  Company Number: US-SA-2014SA161506

PATIENT
  Age: 67 Year
  Sex: Female
  Weight: 68.03 kg

DRUGS (7)
  1. CALCIUM [Concomitant]
     Active Substance: CALCIUM
  2. HUMIRA [Suspect]
     Active Substance: ADALIMUMAB
     Indication: RHEUMATOID ARTHRITIS
     Route: 065
     Dates: start: 2010, end: 20140412
  3. VITAMIN B NOS/ASCORBIC ACID/CALCIUM/RETINOL/ZINC/TOCOPHERYL ACETATE/MINERALS NOS/VITAMINS NOS [Concomitant]
  4. CYMBALTA [Concomitant]
     Active Substance: DULOXETINE HYDROCHLORIDE
     Indication: FIBROMYALGIA
  5. ARAVA [Suspect]
     Active Substance: LEFLUNOMIDE
     Route: 065
     Dates: end: 20140412
  6. FOSAMAX [Concomitant]
     Active Substance: ALENDRONATE SODIUM
     Indication: OSTEOPOROSIS
  7. NEURONTIN [Concomitant]
     Active Substance: GABAPENTIN

REACTIONS (8)
  - Road traffic accident [Unknown]
  - Fibula fracture [Unknown]
  - Pain in extremity [Unknown]
  - Hypertension [Unknown]
  - Staphylococcal infection [Recovered/Resolved]
  - Localised infection [Recovered/Resolved]
  - Arthralgia [Unknown]
  - Nail operation [Unknown]

NARRATIVE: CASE EVENT DATE: 2013
